FAERS Safety Report 23569826 (Version 2)
Quarter: 2024Q1

REPORT INFORMATION
  Report Type: Spontaneous
  Country: IT (occurrence: IT)
  Receive Date: 20240227
  Receipt Date: 20240311
  Transmission Date: 20240410
  Serious: Yes (Other)
  Sender: FDA-Public Use
  Company Number: IT-Accord-408203

PATIENT
  Age: 63 Year
  Sex: Male

DRUGS (19)
  1. ETOPOSIDE [Suspect]
     Active Substance: ETOPOSIDE
     Indication: Acute promyelocytic leukaemia
     Dosage: ON DAYS 1, 2, 3, 4, AND 5
  2. METHOTREXATE [Suspect]
     Active Substance: METHOTREXATE
     Indication: Acute promyelocytic leukaemia
     Dosage: MAINTENANCE THERAPY
     Route: 030
  3. TRETINOIN [Suspect]
     Active Substance: TRETINOIN
     Indication: Acute promyelocytic leukaemia
     Dosage: PER DAY FOR A TOTAL OF 45 DAYS?EVERY 3 MONTHS FOR A TOTAL OF 2 YEARS
     Route: 048
  4. IDARUBICIN [Suspect]
     Active Substance: IDARUBICIN
     Indication: Acute promyelocytic leukaemia
     Dosage: ON DAYS 2, 4, 6, AND 8
  5. CYTARABINE [Suspect]
     Active Substance: CYTARABINE
     Indication: Acute promyelocytic leukaemia
     Dosage: ON DAYS 1, 2, 3, AND 4?1 CYCLE
     Route: 042
  6. MITOXANTRONE [Suspect]
     Active Substance: MITOXANTRONE HYDROCHLORIDE
     Indication: Acute promyelocytic leukaemia
     Dosage: ON DAYS 1, 2, 3, 4, AND 5
     Route: 042
  7. THIOGUANINE [Suspect]
     Active Substance: THIOGUANINE
     Indication: Acute promyelocytic leukaemia
     Dosage: ON DAYS 1, 2, 3, 4, AND 5
  8. MERCAPTOPURINE [Suspect]
     Active Substance: MERCAPTOPURINE
     Indication: Acute promyelocytic leukaemia
     Route: 048
  9. TRETINOIN [Suspect]
     Active Substance: TRETINOIN
     Indication: Acute promyelocytic leukaemia
     Dosage: PER DAY FOR A TOTAL OF 15DAYS
     Route: 048
  10. TRETINOIN [Suspect]
     Active Substance: TRETINOIN
     Indication: Acute promyelocytic leukaemia
     Dosage: PER DAY FOR A TOTAL OF 15 DAYS
     Route: 048
  11. TRETINOIN [Suspect]
     Active Substance: TRETINOIN
     Indication: Acute promyelocytic leukaemia
     Dosage: PER DAY FOR A TOTAL OF 15 DAYS
     Route: 048
  12. TRETINOIN [Suspect]
     Active Substance: TRETINOIN
     Indication: Acute promyelocytic leukaemia
     Dosage: EVERY 3 MONTHS FOR A TOTAL OF 2 YEARS
     Route: 048
  13. IDARUBICIN [Suspect]
     Active Substance: IDARUBICIN
     Indication: Acute promyelocytic leukaemia
     Dosage: ON DAYS 2, 4, 6, AND 8
     Route: 042
  14. THIOGUANINE [Suspect]
     Active Substance: THIOGUANINE
     Indication: Acute promyelocytic leukaemia
     Dosage: EVERY 8 HOURS ON DAYS 1, 2, 3, 4, AND?5 ??1 CYCLICAL
  15. ETOPOSIDE [Suspect]
     Active Substance: ETOPOSIDE
     Indication: Acute promyelocytic leukaemia
     Dosage: ON DAYS 1, 2, 3, 4, AND 5?1 CYCLE
  16. MITOXANTRONE [Suspect]
     Active Substance: MITOXANTRONE HYDROCHLORIDE
     Indication: Acute promyelocytic leukaemia
     Dosage: ON DAYS 1, 2, 3, 4, AND 5
  17. IDARUBICIN [Suspect]
     Active Substance: IDARUBICIN
     Indication: Acute promyelocytic leukaemia
     Dosage: ON DAYS 1, 2, 3, AND 4
     Route: 042
  18. IDARUBICIN [Suspect]
     Active Substance: IDARUBICIN
     Indication: Acute promyelocytic leukaemia
     Dosage: ON DAYS 1
     Route: 042
  19. CYTARABINE [Suspect]
     Active Substance: CYTARABINE
     Indication: Acute promyelocytic leukaemia
     Dosage: ON DAYS 1, 2, 3, 4, AND 5

REACTIONS (2)
  - Off label use [Unknown]
  - Acute myeloid leukaemia [Unknown]

NARRATIVE: CASE EVENT DATE: 20220101
